FAERS Safety Report 23155551 (Version 1)
Quarter: 2023Q4

REPORT INFORMATION
  Report Type: Spontaneous
  Country: IN (occurrence: None)
  Receive Date: 20231107
  Receipt Date: 20231107
  Transmission Date: 20240110
  Serious: Yes (Other)
  Sender: FDA-Public Use
  Company Number: IN-ROCHE-3450702

PATIENT

DRUGS (2)
  1. ALECTINIB [Suspect]
     Active Substance: ALECTINIB
     Indication: Lung neoplasm malignant
     Route: 065
  2. CRIZOTINIB [Concomitant]
     Active Substance: CRIZOTINIB

REACTIONS (1)
  - Metastases to central nervous system [Unknown]
